FAERS Safety Report 5677361-9 (Version None)
Quarter: 2008Q1

REPORT INFORMATION
  Report Type: 
  Country: None (occurrence: None)
  Receive Date: 20080320
  Receipt Date: 20080320
  Transmission Date: 20080703
  Serious: No
  Sender: FDA-Public Use
  Company Number: None

PATIENT
  Age: 63 Year
  Sex: Male

DRUGS (1)
  1. VARENICLINE 1MG PFIZER LABS [Suspect]
     Indication: SMOKING CESSATION THERAPY
     Dosage: 1MG  TWICE A DAY  PO
     Route: 048
     Dates: start: 20071114, end: 20071214

REACTIONS (1)
  - RASH [None]
